FAERS Safety Report 10911987 (Version 1)
Quarter: 2015Q1

REPORT INFORMATION
  Report Type: Spontaneous
  Country: US (occurrence: None)
  Receive Date: 20150310
  Receipt Date: 20150310
  Transmission Date: 20150721
  Serious: No
  Sender: FDA-Public Use
  Company Number: None

PATIENT
  Age: 66 Year
  Sex: Male
  Weight: 75.3 kg

DRUGS (4)
  1. PROBIOTIC [Concomitant]
     Active Substance: PROBIOTICS NOS
  2. NIL [Concomitant]
  3. CLARITHROMYCIN EXTENDED RELEASE [Suspect]
     Active Substance: CLARITHROMYCIN
     Indication: SINUSITIS
     Dosage: 2 TABLETS
     Route: 048
     Dates: start: 20150306, end: 20150308
  4. ALLEGRA [Concomitant]
     Active Substance: FEXOFENADINE HYDROCHLORIDE

REACTIONS (10)
  - Dizziness [None]
  - Fatigue [None]
  - Myalgia [None]
  - Chest discomfort [None]
  - Headache [None]
  - Rash macular [None]
  - Nightmare [None]
  - Ageusia [None]
  - Mood altered [None]
  - Confusional state [None]

NARRATIVE: CASE EVENT DATE: 20150307
